FAERS Safety Report 23547727 (Version 1)
Quarter: 2024Q1

REPORT INFORMATION
  Report Type: Spontaneous
  Country: US (occurrence: US)
  Receive Date: 20240221
  Receipt Date: 20240221
  Transmission Date: 20240410
  Serious: No
  Sender: FDA-Public Use
  Company Number: US-ABBVIE-5646432

PATIENT
  Sex: Male

DRUGS (1)
  1. TAZAROTENE [Suspect]
     Active Substance: TAZAROTENE
     Indication: Acne
     Route: 065

REACTIONS (1)
  - Drug ineffective [Unknown]
